FAERS Safety Report 17399755 (Version 4)
Quarter: 2020Q4

REPORT INFORMATION
  Report Type: Spontaneous
  Country: US (occurrence: US)
  Receive Date: 20200211
  Receipt Date: 20201029
  Transmission Date: 20210113
  Serious: Yes (Hospitalization, Other)
  Sender: FDA-Public Use
  Company Number: US-ASTRAZENECA-2020SE18004

PATIENT
  Age: 22007 Day
  Sex: Female
  Weight: 122.5 kg

DRUGS (8)
  1. RESPIMAT [Concomitant]
  2. PULMICORT FLEXHALER [Suspect]
     Active Substance: BUDESONIDE
     Indication: ASTHMA
     Dosage: 180 MCG, 1 PUFF TWO TIMES A DAY
     Route: 055
  3. IPRATROPIUM [Concomitant]
     Active Substance: IPRATROPIUM
     Indication: RESPIRATORY DISORDER
     Dosage: AS REQUIRED
     Route: 055
  4. XOPENEX [Concomitant]
     Active Substance: LEVALBUTEROL HYDROCHLORIDE
  5. PULMICORT FLEXHALER [Suspect]
     Active Substance: BUDESONIDE
     Indication: TRACHEOMALACIA
     Dosage: 180 MCG, 1 PUFF TWO TIMES A DAY
     Route: 055
  6. PREDNISONE. [Concomitant]
     Active Substance: PREDNISONE
     Indication: ASTHMA
  7. PULMICORT FLEXHALER [Suspect]
     Active Substance: BUDESONIDE
     Indication: VOCAL CORD DYSFUNCTION
     Dosage: 180 MCG, 1 PUFF TWO TIMES A DAY
     Route: 055
  8. ALBUTEROL. [Concomitant]
     Active Substance: ALBUTEROL
     Indication: RESPIRATORY DISORDER
     Dosage: AS REQUIRED
     Route: 055

REACTIONS (10)
  - Fatigue [Unknown]
  - Product use issue [Not Recovered/Not Resolved]
  - Wrong technique in device usage process [Unknown]
  - Tracheomalacia [Unknown]
  - Sinus tachycardia [Unknown]
  - Dyspnoea [Unknown]
  - Vocal cord disorder [Unknown]
  - Device issue [Not Recovered/Not Resolved]
  - Lung disorder [Unknown]
  - Product dose omission issue [Unknown]
